FAERS Safety Report 6136343-3 (Version None)
Quarter: 2009Q1

REPORT INFORMATION
  Report Type: 
  Country: None (occurrence: None)
  Receive Date: 20090330
  Receipt Date: 20090326
  Transmission Date: 20090719
  Serious: No
  Sender: FDA-Public Use
  Company Number: NL-ASTRAZENECA-2009AC00950

PATIENT
  Age: 52 Year
  Sex: Female
  Weight: 85 kg

DRUGS (2)
  1. ZOLADEX [Suspect]
     Indication: UTERINE HAEMORRHAGE
     Route: 058
  2. ZOLADEX [Suspect]
     Route: 058
     Dates: start: 20081229

REACTIONS (4)
  - AGITATION [None]
  - DEPRESSED MOOD [None]
  - INSOMNIA [None]
  - WEIGHT DECREASED [None]
